FAERS Safety Report 12596507 (Version 1)
Quarter: 2016Q3

REPORT INFORMATION
  Report Type: Spontaneous
  Country: IT (occurrence: IT)
  Receive Date: 20160726
  Receipt Date: 20160726
  Transmission Date: 20161109
  Serious: Yes (Other)
  Sender: FDA-Public Use
  Company Number: IT-PFIZER INC-3015767

PATIENT
  Age: 29 Year
  Sex: Female

DRUGS (4)
  1. MEROPENEM. [Suspect]
     Active Substance: MEROPENEM
     Indication: SEPSIS
     Dosage: 6 G, 1X/DAY
     Route: 042
     Dates: start: 20150910
  2. OMEPRAZOLE. [Concomitant]
     Active Substance: OMEPRAZOLE
     Dosage: 40 MG, UNK
     Route: 042
  3. VANCOMYCIN HCL [Suspect]
     Active Substance: VANCOMYCIN HYDROCHLORIDE
     Indication: MENINGITIS
     Dosage: 2000 MG, 1X/DAY
     Route: 042
     Dates: start: 20150910
  4. CLEXANE [Concomitant]
     Active Substance: ENOXAPARIN SODIUM
     Dosage: 4000 IU, UNK
     Route: 058

REACTIONS (2)
  - Hyperamylasaemia [Not Recovered/Not Resolved]
  - Hyperlipasaemia [Not Recovered/Not Resolved]

NARRATIVE: CASE EVENT DATE: 20150914
